FAERS Safety Report 23540160 (Version 2)
Quarter: 2024Q1

REPORT INFORMATION
  Report Type: Spontaneous
  Country: ES (occurrence: ES)
  Receive Date: 20240219
  Receipt Date: 20240221
  Transmission Date: 20240410
  Serious: Yes (Death, Other)
  Sender: FDA-Public Use
  Company Number: ES-BAXTER-2023BAX037128

PATIENT
  Age: 92 Year
  Sex: Female

DRUGS (13)
  1. ZOLEDRONIC ACID [Suspect]
     Active Substance: ZOLEDRONIC ACID
     Indication: Breast cancer metastatic
     Dosage: UNK (UNK, START DATE: 2017 ROUTE OF ADMIN (FREE TEXT): UNKNOWN ROUTE)
     Route: 065
     Dates: start: 2017
  2. ZOLEDRONIC ACID [Suspect]
     Active Substance: ZOLEDRONIC ACID
     Indication: HER2 negative breast cancer
  3. ZOLEDRONIC ACID [Suspect]
     Active Substance: ZOLEDRONIC ACID
     Indication: Invasive ductal breast carcinoma
  4. CYCLOPHOSPHAMIDE [Suspect]
     Active Substance: CYCLOPHOSPHAMIDE
     Indication: Invasive ductal breast carcinoma
     Dosage: UNK (UNK (UNK, FROM AUG-2021 TO DEC-2021))
     Route: 048
     Dates: start: 202108, end: 202112
  5. CYCLOPHOSPHAMIDE [Suspect]
     Active Substance: CYCLOPHOSPHAMIDE
     Indication: Human epidermal growth factor receptor negative
  6. FULVESTRANT [Suspect]
     Active Substance: FULVESTRANT
     Indication: Invasive ductal breast carcinoma
     Dosage: UNK (UNK, FROM 2017, ONGOING ROUTE OF ADMIN (FREE TEXT): UNKNOWN ROUTE)
     Route: 065
     Dates: start: 2017
  7. FULVESTRANT [Suspect]
     Active Substance: FULVESTRANT
     Indication: Human epidermal growth factor receptor negative
     Dosage: UNK (500, FROM APR-2018, CONTINUED ROUTE OF ADMIN (FREE TEXT): UNKNOWN ROUTE)
     Route: 065
     Dates: start: 201804
  8. CAPECITABINE [Suspect]
     Active Substance: CAPECITABINE
     Indication: Breast cancer metastatic
     Dosage: UNK (UNK, FROM AUG-2021 TO DEC-2021)
     Route: 048
     Dates: start: 202108, end: 202112
  9. CAPECITABINE [Suspect]
     Active Substance: CAPECITABINE
     Indication: HER2 negative breast cancer
  10. CAPECITABINE [Suspect]
     Active Substance: CAPECITABINE
     Indication: Invasive ductal breast carcinoma
  11. PALBOCICLIB [Suspect]
     Active Substance: PALBOCICLIB
     Indication: Invasive ductal breast carcinoma
     Dosage: UNK (125 MG X 21 DAYS EVERY 28 DAYS, FROM : DEC-2017 TO FEB-2018 ROUTE OF ADMIN (FREE TEXT): UNKNOWN
     Route: 065
     Dates: start: 201712, end: 201802
  12. PALBOCICLIB [Suspect]
     Active Substance: PALBOCICLIB
     Indication: Breast cancer metastatic
     Dosage: UNK (100 MG X 21 DAYS EVERY 28 DAYS, FROM FEB-2018 TO APR-2018 ROUTE OF ADMIN (FREE TEXT): UNKNOWN R
     Route: 065
     Dates: start: 201802, end: 201804
  13. PALBOCICLIB [Suspect]
     Active Substance: PALBOCICLIB
     Dosage: UNK (75 MG/DAY X 21 DAYS EVERY 28 DAYS, CONTINUED, START DATE: APR-2018 ROUTE OF ADMIN (FREE TEXT):
     Route: 065
     Dates: start: 201804

REACTIONS (1)
  - Death [Fatal]
